FAERS Safety Report 6442535-6 (Version None)
Quarter: 2009Q4

REPORT INFORMATION
  Report Type: 
  Country: None (occurrence: None)
  Receive Date: 20091112
  Receipt Date: 20091028
  Transmission Date: 20100525
  Serious: Yes (Other)
  Sender: FDA-Public Use
  Company Number: 8053886

PATIENT
  Sex: Female
  Weight: 3.4 kg

DRUGS (2)
  1. KEPPRA [Suspect]
     Indication: EPILEPSY
     Dosage: 500 MG /D TRP
     Route: 064
     Dates: start: 20090101, end: 20090930
  2. URBANYL [Suspect]
     Indication: EPILEPSY
     Dosage: 5 MG /D TRP
     Route: 064
     Dates: start: 20090101, end: 20090930

REACTIONS (2)
  - HYPOTONIA NEONATAL [None]
  - MATERNAL DRUGS AFFECTING FOETUS [None]
